FAERS Safety Report 7425710-3 (Version None)
Quarter: 2011Q2

REPORT INFORMATION
  Report Type: 
  Country: None (occurrence: None)
  Receive Date: 20110420
  Receipt Date: 20110406
  Transmission Date: 20111010
  Serious: Yes (Hospitalization, Other)
  Sender: FDA-Public Use
  Company Number: US-ELI_LILLY_AND_COMPANY-US201101000959

PATIENT
  Sex: Female

DRUGS (7)
  1. FORTEO [Suspect]
     Dosage: 20 UG, QD
     Dates: start: 20101101
  2. FUROSEMIDE [Concomitant]
     Dosage: 1 D/F, DAILY (1/D)
  3. FUROSEMIDE [Concomitant]
     Dosage: 2 D/F, DAILY (1/D)
  4. FORTEO [Suspect]
     Indication: OSTEOPOROSIS
     Dosage: 20 UG, DAILY (1/D)
     Dates: start: 20101215
  5. FORTEO [Suspect]
     Dosage: 20 UG, DAILY (1/D)
     Dates: start: 20101215
  6. PREDNISONE [Concomitant]
  7. ANTIBIOTICS [Concomitant]
     Dosage: UNK, UNKNOWN
     Route: 065

REACTIONS (13)
  - OEDEMA PERIPHERAL [None]
  - THROMBOSIS [None]
  - NASOPHARYNGITIS [None]
  - JOINT INJURY [None]
  - STAPHYLOCOCCAL INFECTION [None]
  - RASH PUSTULAR [None]
  - RESPIRATORY TRACT CONGESTION [None]
  - WHEEZING [None]
  - DECREASED APPETITE [None]
  - HYPOKINESIA [None]
  - FEELING ABNORMAL [None]
  - PAIN IN EXTREMITY [None]
  - LOWER RESPIRATORY TRACT INFECTION [None]
